FAERS Safety Report 24903386 (Version 1)
Quarter: 2025Q1

REPORT INFORMATION
  Report Type: Spontaneous
  Country: JP (occurrence: JP)
  Receive Date: 20250130
  Receipt Date: 20250130
  Transmission Date: 20250409
  Serious: Yes (Other)
  Sender: UNITED THERAPEUTICS
  Company Number: JP-UNITED THERAPEUTICS-UNT-2025-002758

PATIENT
  Age: 4 Year
  Sex: Male

DRUGS (5)
  1. UNITUXIN [Suspect]
     Active Substance: DINUTUXIMAB
     Indication: Product used for unknown indication
     Route: 041
  2. UNITUXIN [Suspect]
     Active Substance: DINUTUXIMAB
     Route: 041
  3. UNITUXIN [Suspect]
     Active Substance: DINUTUXIMAB
     Route: 041
  4. UNITUXIN [Suspect]
     Active Substance: DINUTUXIMAB
     Route: 041
  5. UNITUXIN [Suspect]
     Active Substance: DINUTUXIMAB
     Route: 041

REACTIONS (1)
  - Disease progression [Unknown]
